FAERS Safety Report 8008284-8 (Version None)
Quarter: 2011Q4

REPORT INFORMATION
  Report Type: 
  Country: None (occurrence: None)
  Receive Date: 20111227
  Receipt Date: 20111221
  Transmission Date: 20120403
  Serious: Yes (Hospitalization, Other)
  Sender: FDA-Public Use
  Company Number: CA-AMGEN-CANSP2011066266

PATIENT
  Age: 50 Year
  Sex: Female

DRUGS (8)
  1. OLMESARTAN MEDOXOMIL [Concomitant]
     Dosage: UNK
  2. CELEBREX [Concomitant]
     Dosage: 200 MG, UNK
  3. METHOTREXATE [Concomitant]
     Dosage: 10 MG, UNK
  4. ENBREL [Suspect]
     Indication: RHEUMATOID ARTHRITIS
     Dosage: 50 MG, QWK
     Dates: start: 20100520, end: 20110821
  5. ARAVA [Concomitant]
     Dosage: UNK
  6. SYNTHROID [Concomitant]
     Dosage: UNK
  7. FOLIC ACID [Concomitant]
     Dosage: UNK
  8. PANTOPRAZOLE [Concomitant]
     Dosage: UNK

REACTIONS (2)
  - LOWER RESPIRATORY TRACT INFLAMMATION [None]
  - PNEUMONIA PRIMARY ATYPICAL [None]
